FAERS Safety Report 13744650 (Version 1)
Quarter: 2017Q3

REPORT INFORMATION
  Report Type: Spontaneous
  Country: GB (occurrence: GB)
  Receive Date: 20170712
  Receipt Date: 20170712
  Transmission Date: 20171127
  Serious: Yes (Hospitalization)
  Sender: FDA-Public Use
  Company Number: GB-ASTRAZENECA-2017SE71164

PATIENT
  Age: 83 Year
  Sex: Male

DRUGS (13)
  1. FERROUS SULFATE. [Concomitant]
     Active Substance: FERROUS SULFATE
  2. TROSPIUM CHLORIDE. [Concomitant]
     Active Substance: TROSPIUM CHLORIDE
  3. WARFARIN [Concomitant]
     Active Substance: WARFARIN
  4. AMOXICILLIN. [Concomitant]
     Active Substance: AMOXICILLIN
  5. LUPRON DEPOT [Concomitant]
     Active Substance: LEUPROLIDE ACETATE
  6. DAPAGLIFLOZIN. [Suspect]
     Active Substance: DAPAGLIFLOZIN
     Indication: TYPE 2 DIABETES MELLITUS
     Route: 048
  7. DARIFENACIN. [Concomitant]
     Active Substance: DARIFENACIN
  8. FLUCLOXACILLIN SODIUM [Concomitant]
     Active Substance: FLUCLOXACILLIN
  9. SITAGLIPTIN [Concomitant]
     Active Substance: SITAGLIPTIN
  10. TAMSULOSIN [Concomitant]
     Active Substance: TAMSULOSIN
  11. BISOPROLOL [Concomitant]
     Active Substance: BISOPROLOL
  12. GLICLAZIDE [Concomitant]
     Active Substance: GLICLAZIDE
  13. SIMVASTATIN. [Concomitant]
     Active Substance: SIMVASTATIN

REACTIONS (1)
  - Diabetic ketoacidosis [Unknown]
